FAERS Safety Report 20320346 (Version 1)
Quarter: 2022Q1

REPORT INFORMATION
  Report Type: Spontaneous
  Country: US (occurrence: None)
  Receive Date: 20220110
  Receipt Date: 20220110
  Transmission Date: 20220423
  Serious: Yes (Other)
  Sender: FDA-Public Use
  Company Number: None

PATIENT
  Age: 36 Year
  Sex: Female
  Weight: 72 kg

DRUGS (5)
  1. REGEN-COV [Suspect]
     Active Substance: CASIRIVIMAB\IMDEVIMAB
     Indication: SARS-CoV-2 test positive
     Dates: end: 20211208
  2. LOSARTAN [Concomitant]
     Active Substance: LOSARTAN
  3. WELLBUTRIN [Concomitant]
     Active Substance: BUPROPION HYDROCHLORIDE
  4. CELEXA [Concomitant]
     Active Substance: CITALOPRAM HYDROBROMIDE
  5. MELATONIN [Concomitant]
     Active Substance: MELATONIN

REACTIONS (13)
  - Pain in extremity [None]
  - Hypoaesthesia [None]
  - Myositis [None]
  - Pain [None]
  - Loss of personal independence in daily activities [None]
  - Muscle spasms [None]
  - Blood potassium decreased [None]
  - Vaccination complication [None]
  - Injection site erythema [None]
  - Injection site rash [None]
  - Injection site warmth [None]
  - Musculoskeletal disorder [None]
  - Injection site hypoaesthesia [None]

NARRATIVE: CASE EVENT DATE: 20211213
